FAERS Safety Report 12585542 (Version 1)
Quarter: 2016Q3

REPORT INFORMATION
  Report Type: Spontaneous
  Country: US (occurrence: US)
  Receive Date: 20160725
  Receipt Date: 20160725
  Transmission Date: 20161109
  Serious: No
  Sender: FDA-Public Use
  Company Number: US-LUPIN PHARMACEUTICALS INC.-2016-01347

PATIENT
  Age: 2 Month
  Sex: 0

DRUGS (2)
  1. FAMOTIDINE. [Suspect]
     Active Substance: FAMOTIDINE
     Indication: PRODUCT USED FOR UNKNOWN INDICATION
     Route: 048
  2. FAMOTIDINE. [Suspect]
     Active Substance: FAMOTIDINE
     Route: 048

REACTIONS (2)
  - Accidental overdose [Unknown]
  - No adverse event [Unknown]
